FAERS Safety Report 6583461-1 (Version None)
Quarter: 2010Q1

REPORT INFORMATION
  Report Type: 
  Country: None (occurrence: None)
  Receive Date: 20100216
  Receipt Date: 20100211
  Transmission Date: 20100710
  Serious: Yes (Other)
  Sender: FDA-Public Use
  Company Number: GB-TEVA-224079ISR

PATIENT
  Sex: Female

DRUGS (1)
  1. LIDOCAINE [Suspect]
     Indication: PREMEDICATION

REACTIONS (2)
  - DYSKINESIA [None]
  - MUSCLE TIGHTNESS [None]
